FAERS Safety Report 4591764-5 (Version None)
Quarter: 2005Q1

REPORT INFORMATION
  Report Type: 
  Country: None (occurrence: None)
  Receive Date: 20050218
  Receipt Date: 20050210
  Transmission Date: 20050727
  Serious: Yes (Hospitalization)
  Sender: FDA-Public Use
  Company Number: FABR-10593

PATIENT
  Age: 54 Year
  Sex: Male
  Weight: 108 kg

DRUGS (8)
  1. FABRAZYME [Suspect]
     Indication: FABRY'S DISEASE
     Dosage: 105 MG Q2WKS IV
     Dates: start: 20040205
  2. GENGRAF [Concomitant]
  3. CELLCEPT [Concomitant]
  4. FOLTX [Concomitant]
  5. PREDNISONE [Concomitant]
  6. ALLOPURINOL [Concomitant]
  7. VASOTEC [Concomitant]
  8. COUMADIN [Concomitant]

REACTIONS (6)
  - ANGINA PECTORIS [None]
  - ARTHRALGIA [None]
  - CARDIAC ENZYMES INCREASED [None]
  - DEEP VEIN THROMBOSIS [None]
  - INTERNATIONAL NORMALISED RATIO INCREASED [None]
  - RED BLOOD CELL COUNT INCREASED [None]
